FAERS Safety Report 16233569 (Version 2)
Quarter: 2019Q2

REPORT INFORMATION
  Report Type: Spontaneous
  Country: US (occurrence: US)
  Receive Date: 20190424
  Receipt Date: 20190612
  Transmission Date: 20190711
  Serious: No
  Sender: FDA-Public Use
  Company Number: US-PFIZER INC-2019171629

PATIENT
  Age: 5 Year
  Sex: Female

DRUGS (1)
  1. EUCRISA [Suspect]
     Active Substance: CRISABOROLE
     Dosage: UNK, 2X/DAY (APPLY TO AFFECTED AREAS)
     Route: 061
     Dates: start: 201903

REACTIONS (2)
  - Application site pain [Unknown]
  - Drug ineffective [Unknown]
